FAERS Safety Report 4973616-1 (Version None)
Quarter: 2006Q2

REPORT INFORMATION
  Report Type: 
  Country: None (occurrence: None)
  Receive Date: 20060413
  Receipt Date: 20060413
  Transmission Date: 20061013
  Serious: Yes (Hospitalization)
  Sender: FDA-Public Use
  Company Number: None

PATIENT
  Sex: Male
  Weight: 84.8226 kg

DRUGS (1)
  1. ABILIFY [Suspect]
     Indication: SCHIZOPHRENIA
     Dosage: 75 MG   DAILY   PO
     Route: 048

REACTIONS (2)
  - HAEMOLYTIC ANAEMIA [None]
  - UPPER RESPIRATORY TRACT INFECTION [None]
